FAERS Safety Report 5251878-3 (Version None)
Quarter: 2007Q1

REPORT INFORMATION
  Report Type: 
  Country: None (occurrence: None)
  Receive Date: 20070223
  Receipt Date: 20070209
  Transmission Date: 20070707
  Serious: Yes (Hospitalization)
  Sender: FDA-Public Use
  Company Number: 070214-0000187

PATIENT
  Age: 24 Hour
  Sex: Female

DRUGS (2)
  1. INDOCIN [Suspect]
     Indication: DRUG USE FOR UNKNOWN INDICATION
     Dosage: 0.2 MG/KG; X1; IV
     Route: 042
  2. HEPARINIZED SALINE [Concomitant]

REACTIONS (3)
  - ILIAC ARTERY OCCLUSION [None]
  - NEONATAL DISORDER [None]
  - PERIPHERAL ISCHAEMIA [None]
